FAERS Safety Report 4973295-3 (Version None)
Quarter: 2006Q2

REPORT INFORMATION
  Report Type: 
  Country: None (occurrence: None)
  Receive Date: 20060407
  Receipt Date: 20060330
  Transmission Date: 20061013
  Serious: Yes (Hospitalization)
  Sender: FDA-Public Use
  Company Number: EM2006-0194

PATIENT
  Age: 49 Year
  Sex: Male
  Weight: 75 kg

DRUGS (12)
  1. MACROLIN [Suspect]
     Indication: HIV INFECTION
     Dosage: SEE IMAGE
     Dates: start: 20040705, end: 20040709
  2. MACROLIN [Suspect]
     Indication: HIV INFECTION
     Dosage: SEE IMAGE
     Dates: start: 20040906, end: 20040910
  3. MACROLIN [Suspect]
     Indication: HIV INFECTION
     Dosage: SEE IMAGE
     Dates: start: 20041103, end: 20041107
  4. MACROLIN [Suspect]
     Indication: HIV INFECTION
     Dosage: SEE IMAGE
     Dates: start: 20050105, end: 20050109
  5. MACROLIN [Suspect]
  6. TRUVADA [Concomitant]
  7. REYATAZ [Concomitant]
  8. NORVIR [Concomitant]
  9. COMBIVIR [Concomitant]
  10. KETOCONAZOLE [Concomitant]
  11. DEBRIDAT ^IBRAHIM^ (TRIMEBUTINE MALEATE) [Concomitant]
  12. BACTRIM [Concomitant]

REACTIONS (2)
  - HYDRONEPHROSIS [None]
  - LYMPHOMA [None]
